FAERS Safety Report 16971894 (Version 1)
Quarter: 2019Q4

REPORT INFORMATION
  Report Type: Spontaneous
  Country: US (occurrence: US)
  Receive Date: 20191029
  Receipt Date: 20191029
  Transmission Date: 20200122
  Serious: Yes (Death, Hospitalization)
  Sender: FDA-Public Use
  Company Number: US-TEVA-2019-US-1128861

PATIENT
  Age: 75 Year
  Sex: Male

DRUGS (3)
  1. CAPECITABINE. [Suspect]
     Active Substance: CAPECITABINE
     Indication: DUCTAL ADENOCARCINOMA OF PANCREAS
     Dosage: TWICE DAILY ON DAYS 1 TO 21
     Route: 048
  2. METHYLPREDNISOLONE. [Suspect]
     Active Substance: METHYLPREDNISOLONE
     Indication: RESPIRATORY FAILURE
     Dosage: 1000 MILLIGRAM DAILY;
     Route: 042
  3. GEMCITABINE. [Suspect]
     Active Substance: GEMCITABINE
     Indication: DUCTAL ADENOCARCINOMA OF PANCREAS
     Dosage: ON DAY 1, 8, AND 15 ON A 28-DAY CYCLE FOR 6 CYCLES
     Route: 065

REACTIONS (9)
  - Drug ineffective [Unknown]
  - Pulmonary toxicity [Unknown]
  - Orthostatic hypotension [Unknown]
  - Respiratory failure [Unknown]
  - Diffuse alveolar damage [Fatal]
  - Pneumonia [Fatal]
  - Pulseless electrical activity [Recovered/Resolved]
  - Syncope [Unknown]
  - Pulmonary embolism [Unknown]
